FAERS Safety Report 5838643-0 (Version None)
Quarter: 2008Q3

REPORT INFORMATION
  Report Type: 
  Country: None (occurrence: None)
  Receive Date: 20080808
  Receipt Date: 20080711
  Transmission Date: 20090109
  Serious: No
  Sender: FDA-Public Use
  Company Number: A0738066A

PATIENT
  Sex: Female

DRUGS (1)
  1. ALTABAX [Suspect]
     Route: 061
     Dates: start: 20080709

REACTIONS (1)
  - BURNING SENSATION [None]
